FAERS Safety Report 4910122-4 (Version None)
Quarter: 2006Q1

REPORT INFORMATION
  Report Type: 
  Country: None (occurrence: None)
  Receive Date: 20060209
  Receipt Date: 20060131
  Transmission Date: 20060701
  Serious: Yes (Other)
  Sender: FDA-Public Use
  Company Number: 2006016554

PATIENT
  Age: 45 Year
  Sex: Female
  Weight: 90.7194 kg

DRUGS (4)
  1. NEURONTIN [Suspect]
     Indication: MIGRAINE
     Dosage: 4000MG TO 6000MG DAILY
     Dates: start: 19970101
  2. ZOLOFT [Suspect]
     Indication: ILL-DEFINED DISORDER
  3. PAXIL [Suspect]
     Indication: ILL-DEFINED DISORDER
  4. LAMICTAL [Concomitant]

REACTIONS (10)
  - ABNORMAL BEHAVIOUR [None]
  - BODY HEIGHT DECREASED [None]
  - DISTURBANCE IN ATTENTION [None]
  - DRUG INEFFECTIVE [None]
  - ECONOMIC PROBLEM [None]
  - MEMORY IMPAIRMENT [None]
  - MIGRAINE [None]
  - OSTEOARTHRITIS [None]
  - SUICIDAL IDEATION [None]
  - SUICIDE ATTEMPT [None]
